FAERS Safety Report 9057324 (Version 1)
Quarter: 2013Q1

REPORT INFORMATION
  Report Type: Report from Study
  Country: US (occurrence: US)
  Receive Date: 20130131
  Receipt Date: 20130131
  Transmission Date: 20140127
  Serious: Yes (Hospitalization, Other)
  Sender: FDA-Public Use
  Company Number: US-TEVA-383598USA

PATIENT
  Age: 59 None
  Sex: Female

DRUGS (1)
  1. CLOZAPINE [Suspect]
     Indication: SCHIZOPHRENIA
     Route: 048
     Dates: end: 20130124

REACTIONS (3)
  - Unresponsive to stimuli [Recovering/Resolving]
  - Infection [Recovering/Resolving]
  - Mental status changes [Recovering/Resolving]
